FAERS Safety Report 25347866 (Version 1)
Quarter: 2025Q2

REPORT INFORMATION
  Report Type: Spontaneous
  Country: US (occurrence: US)
  Receive Date: 20250522
  Receipt Date: 20250522
  Transmission Date: 20250717
  Serious: No
  Sender: PFIZER
  Company Number: US-PFIZER INC-202500105380

PATIENT
  Age: 38 Year
  Sex: Female

DRUGS (2)
  1. VELSIPITY [Interacting]
     Active Substance: ETRASIMOD ARGININE
  2. ZYRTEC [Interacting]
     Active Substance: CETIRIZINE HYDROCHLORIDE
     Indication: Hypersensitivity

REACTIONS (1)
  - Drug interaction [Unknown]
